FAERS Safety Report 4340801-1 (Version None)
Quarter: 2004Q2

REPORT INFORMATION
  Report Type: 
  Country: None (occurrence: None)
  Receive Date: 20040419
  Receipt Date: 20021210
  Transmission Date: 20050107
  Serious: No
  Sender: FDA-Public Use
  Company Number: US-GLAXOSMITHKLINE-A0389656A

PATIENT
  Age: 31 Year
  Sex: Female
  Weight: 144.5 kg

DRUGS (1)
  1. ESKALITH CR [Suspect]
     Dosage: 450MG TWICE PER DAY

REACTIONS (2)
  - BIPOLAR I DISORDER [None]
  - DRUG LEVEL DECREASED [None]
